FAERS Safety Report 18713293 (Version 1)
Quarter: 2021Q1

REPORT INFORMATION
  Report Type: Spontaneous
  Country: US (occurrence: US)
  Receive Date: 20210107
  Receipt Date: 20210107
  Transmission Date: 20210419
  Serious: Yes (Hospitalization)
  Sender: FDA-Public Use
  Company Number: US-PFIZER INC-2021006447

PATIENT
  Sex: Male

DRUGS (3)
  1. FENTANYL CITRATE. [Suspect]
     Active Substance: FENTANYL CITRATE
     Indication: PAIN
     Dosage: 100 UG (100 MCG, ONCE)
     Route: 042
  2. PROPOFOL. [Suspect]
     Active Substance: PROPOFOL
     Indication: SEDATION
     Dosage: 90 MG (90 MG, ONCE)
     Route: 042
  3. MIDAZOLAM. [Suspect]
     Active Substance: MIDAZOLAM
     Indication: SEDATION
     Dosage: 2 MG (2 MG, ONCE)
     Route: 042

REACTIONS (8)
  - Fear [Recovering/Resolving]
  - Hallucination [Recovering/Resolving]
  - Loss of consciousness [Recovering/Resolving]
  - Panic reaction [Recovering/Resolving]
  - Tachycardia [Recovering/Resolving]
  - Respiratory disorder [Recovering/Resolving]
  - Epistaxis [Recovering/Resolving]
  - Otorrhoea [Recovering/Resolving]

NARRATIVE: CASE EVENT DATE: 201505
